FAERS Safety Report 8615178-3 (Version None)
Quarter: 2012Q3

REPORT INFORMATION
  Report Type: 
  Country: None (occurrence: None)
  Receive Date: 20120823
  Receipt Date: 20120810
  Transmission Date: 20120928
  Serious: Yes (Life-Threatening, Hospitalization)
  Sender: FDA-Public Use
  Company Number: HU-CELGENEUS-076-21880-12060029

PATIENT
  Sex: Male

DRUGS (19)
  1. ZOLEDRONIC ACID [Concomitant]
     Route: 065
     Dates: start: 20120425
  2. ACYCLOVIR [Concomitant]
     Route: 065
     Dates: start: 20120522
  3. ELOTUZUMAB [Suspect]
     Indication: MULTIPLE MYELOMA
     Route: 065
  4. SUPPOSITORIUM ANALGETICUM FORTE [Concomitant]
     Route: 065
     Dates: end: 20120529
  5. METHIMAZOLE [Concomitant]
     Route: 065
     Dates: end: 20120529
  6. REVLIMID [Suspect]
     Indication: MULTIPLE MYELOMA
     Dosage: 25 MILLIGRAM
     Route: 048
     Dates: start: 20120522, end: 20120529
  7. PANTOPRAZOLE [Concomitant]
     Route: 065
     Dates: start: 20080718
  8. TOLPERISONE [Concomitant]
     Route: 065
     Dates: end: 20120529
  9. FLUCONAZOLE [Concomitant]
     Route: 065
     Dates: start: 20120601
  10. DEXAMETHASONE [Suspect]
     Indication: MULTIPLE MYELOMA
     Route: 065
  11. VALSARTAN  AND HYDROCHLOROTHIAZIDE [Concomitant]
     Route: 065
     Dates: end: 20120529
  12. AZULFIDINE [Concomitant]
     Route: 065
     Dates: start: 20111201
  13. CIPROFLOXACIN [Concomitant]
     Route: 065
     Dates: start: 20120522
  14. TRAMADOL HCL [Concomitant]
     Route: 065
  15. FENTANYL [Concomitant]
     Route: 065
     Dates: start: 20120531
  16. HIDROXYMORPHON [Concomitant]
     Route: 065
     Dates: end: 20120529
  17. CHLOROQUINE [Concomitant]
     Route: 065
     Dates: start: 20111201, end: 20120529
  18. INDAPAMID [Concomitant]
     Route: 065
     Dates: end: 20120529
  19. ENOXAPARIN SODIUM [Concomitant]
     Route: 065
     Dates: start: 20120522

REACTIONS (3)
  - TUMOUR LYSIS SYNDROME [None]
  - RENAL FAILURE ACUTE [None]
  - BACTERIAL INFECTION [None]
